FAERS Safety Report 4308656-9 (Version None)
Quarter: 2004Q1

REPORT INFORMATION
  Report Type: 
  Country: None (occurrence: None)
  Receive Date: 20040301
  Receipt Date: 20040223
  Transmission Date: 20041129
  Serious: Yes (Death)
  Sender: FDA-Public Use
  Company Number: APP200400116

PATIENT
  Age: 82 Year
  Sex: Male

DRUGS (3)
  1. HEPARIN SODIUM INJECTION [Suspect]
     Indication: ANTICOAGULANT THERAPY
     Dosage: 35,000 UNITS, REPEAT DOSE (35000 USP UNITS, 2 IN 1 D), INTRAVENOUS
     Route: 042
     Dates: start: 20040126, end: 20040126
  2. PROTAMINE SULFATE [Concomitant]
  3. TRASYLOL [Concomitant]

REACTIONS (5)
  - CARDIAC PROCEDURE COMPLICATION [None]
  - DRUG INEFFECTIVE [None]
  - INTRACARDIAC THROMBUS [None]
  - MEDICAL DEVICE COMPLICATION [None]
  - THROMBOSIS [None]
